FAERS Safety Report 5339482-X (Version None)
Quarter: 2007Q2

REPORT INFORMATION
  Report Type: 
  Country: None (occurrence: None)
  Receive Date: 20070525
  Receipt Date: 20070510
  Transmission Date: 20071010
  Serious: Yes (Hospitalization)
  Sender: FDA-Public Use
  Company Number: DSA_29944_2007

PATIENT
  Age: 81 Year
  Sex: Female

DRUGS (4)
  1. DILTIAZEM [Suspect]
  2. CLOPIDOGREL [Concomitant]
  3. GLICLAZIDE [Concomitant]
  4. GLYCERYL TRINITRATE [Concomitant]

REACTIONS (2)
  - DERMATITIS CONTACT [None]
  - PHOTOSENSITIVITY REACTION [None]
